FAERS Safety Report 6114833-7 (Version None)
Quarter: 2009Q1

REPORT INFORMATION
  Report Type: 
  Country: None (occurrence: None)
  Receive Date: 20090313
  Receipt Date: 20090224
  Transmission Date: 20090719
  Serious: Yes (Other)
  Sender: FDA-Public Use
  Company Number: JP-PFIZER INC-2009178814

PATIENT

DRUGS (7)
  1. CHANTIX [Suspect]
     Indication: SMOKING CESSATION THERAPY
     Dosage: 1 MG, 2X/DAY
     Dates: start: 20090203, end: 20090216
  2. CHANTIX [Suspect]
     Indication: NICOTINE DEPENDENCE
  3. CELESTAMINE TAB [Suspect]
     Dosage: UNK
     Route: 048
     Dates: start: 20090123, end: 20090216
  4. HERBAL PREPARATION [Concomitant]
     Dosage: UNK
     Route: 048
     Dates: start: 20090115, end: 20090123
  5. TAMIFLU [Concomitant]
     Dosage: UNK
     Route: 048
     Dates: start: 20090115, end: 20090120
  6. ZITHROMAX [Concomitant]
     Dosage: UNK
     Route: 048
     Dates: start: 20090120, end: 20090122
  7. ALLELOCK [Concomitant]
     Dosage: 5 MG, 2X/DAY
     Route: 048
     Dates: start: 20090123

REACTIONS (1)
  - TOXIC SKIN ERUPTION [None]
